FAERS Safety Report 13701714 (Version 1)
Quarter: 2017Q2

REPORT INFORMATION
  Report Type: Spontaneous
  Country: US (occurrence: US)
  Receive Date: 20170629
  Receipt Date: 20170629
  Transmission Date: 20170830
  Serious: Yes (Other)
  Sender: FDA-Public Use
  Company Number: US-TEVA-782130USA

PATIENT
  Sex: Female

DRUGS (1)
  1. BUPROPION. [Suspect]
     Active Substance: BUPROPION
     Route: 065

REACTIONS (8)
  - Depression suicidal [Unknown]
  - Product substitution issue [Unknown]
  - Withdrawal syndrome [Unknown]
  - Suicidal ideation [Unknown]
  - Adverse event [Unknown]
  - Mania [Unknown]
  - Drug ineffective [Unknown]
  - Product physical issue [Unknown]
